FAERS Safety Report 17616809 (Version 1)
Quarter: 2020Q2

REPORT INFORMATION
  Report Type: Report from Study
  Country: None (occurrence: US)
  Receive Date: 20200402
  Receipt Date: 20200402
  Transmission Date: 20200713
  Serious: Yes (Other)
  Sender: FDA-Public Use
  Company Number: US-BIOVITRUM-2019US4707

PATIENT
  Age: 28 Year
  Sex: Female

DRUGS (1)
  1. KINERET [Suspect]
     Active Substance: ANAKINRA
     Indication: STILL^S DISEASE
     Route: 058
     Dates: start: 20191206

REACTIONS (12)
  - Visual impairment [Unknown]
  - Alopecia [Unknown]
  - Injection site erythema [Unknown]
  - Injection site swelling [Unknown]
  - Still^s disease [Unknown]
  - Injection site rash [Recovered/Resolved]
  - Dry skin [Unknown]
  - Condition aggravated [Unknown]
  - Injection site mass [Unknown]
  - Pain [Unknown]
  - Injection site pruritus [Unknown]
  - Off label use [Not Recovered/Not Resolved]

NARRATIVE: CASE EVENT DATE: 20191206
